FAERS Safety Report 6421952-4 (Version None)
Quarter: 2009Q4

REPORT INFORMATION
  Report Type: 
  Country: None (occurrence: None)
  Receive Date: 20091030
  Receipt Date: 20091013
  Transmission Date: 20100525
  Serious: Yes (Other)
  Sender: FDA-Public Use
  Company Number: US-BAYER-200836712NA

PATIENT
  Age: 77 Year
  Sex: Male

DRUGS (4)
  1. MAGNEVIST [Suspect]
     Indication: NUCLEAR MAGNETIC RESONANCE IMAGING
     Route: 042
     Dates: start: 20050701
  2. OMNISCAN [Suspect]
     Indication: NUCLEAR MAGNETIC RESONANCE IMAGING
     Route: 042
     Dates: start: 19990511, end: 19990511
  3. OMNISCAN [Suspect]
     Route: 042
     Dates: start: 20021219, end: 20021219
  4. OMNISCAN [Suspect]
     Route: 042
     Dates: start: 20031209, end: 20031209

REACTIONS (1)
  - NEPHROGENIC SYSTEMIC FIBROSIS [None]
